FAERS Safety Report 6268063-9 (Version None)
Quarter: 2009Q3

REPORT INFORMATION
  Report Type: 
  Country: None (occurrence: None)
  Receive Date: 20090713
  Receipt Date: 20090629
  Transmission Date: 20100115
  Serious: Yes (Hospitalization, Disabling, Other)
  Sender: FDA-Public Use
  Company Number: A-CH2008-23047

PATIENT
  Age: 57 Year
  Sex: Female
  Weight: 71 kg

DRUGS (9)
  1. TRACLEER(BOSENTAN) TABLET 125 MG DUO EU) [Suspect]
     Indication: SKIN ULCER
     Dosage: 125 MG, BID, ORAL; 62.5 MG, BID, ORAL
     Route: 048
     Dates: start: 20080301, end: 20080421
  2. TRACLEER(BOSENTAN) TABLET 125 MG DUO EU) [Suspect]
     Indication: SKIN ULCER
     Dosage: 125 MG, BID, ORAL; 62.5 MG, BID, ORAL
     Route: 048
     Dates: start: 20080422, end: 20080501
  3. COLCHICINE(COLCHICINE) [Suspect]
     Dates: end: 20081010
  4. PROSTACYCLIN (EPOPROSTENOL) [Concomitant]
  5. GLUCOCORTICOIDS [Concomitant]
  6. AZATHIOPRINE SODIUM [Concomitant]
  7. DILTIAZEM HYDROCHLORIDE [Concomitant]
  8. RAMIPRIL [Concomitant]
  9. PANTOPRAZOLE SODIUM [Concomitant]

REACTIONS (8)
  - DRUG INEFFECTIVE [None]
  - DRUG INTERACTION [None]
  - DRUG TOXICITY [None]
  - MYOSITIS [None]
  - OEDEMA PERIPHERAL [None]
  - PAIN IN EXTREMITY [None]
  - PERIPHERAL MOTOR NEUROPATHY [None]
  - VASCULITIS [None]
